FAERS Safety Report 14892684 (Version 1)
Quarter: 2018Q2

REPORT INFORMATION
  Report Type: Spontaneous
  Country: US (occurrence: US)
  Receive Date: 20180509
  Receipt Date: 20180509
  Transmission Date: 20180711
  Serious: Yes (Other)
  Sender: FDA-Public Use
  Company Number: None

PATIENT
  Age: 37 Year
  Sex: Female
  Weight: 83.9 kg

DRUGS (3)
  1. CEFEPIME [Suspect]
     Active Substance: CEFEPIME HYDROCHLORIDE
     Indication: OSTEOMYELITIS
     Route: 042
     Dates: start: 20180305, end: 20180323
  2. VANCOMYCIN [Concomitant]
     Active Substance: VANCOMYCIN
  3. CEFEPIME [Suspect]
     Active Substance: CEFEPIME HYDROCHLORIDE
     Indication: INTERVERTEBRAL DISCITIS
     Route: 042
     Dates: start: 20180305, end: 20180323

REACTIONS (1)
  - Neutropenia [None]

NARRATIVE: CASE EVENT DATE: 20180326
